FAERS Safety Report 13872632 (Version 1)
Quarter: 2017Q3

REPORT INFORMATION
  Report Type: Spontaneous
  Country: US (occurrence: US)
  Receive Date: 20170816
  Receipt Date: 20170816
  Transmission Date: 20171127
  Serious: No
  Sender: FDA-Public Use
  Company Number: US-ENDO PHARMACEUTICALS INC-2016-005435

PATIENT
  Age: 35 Year
  Sex: Male
  Weight: 111.23 kg

DRUGS (3)
  1. SUMAVEL DOSEPRO [Suspect]
     Active Substance: SUMATRIPTAN SUCCINATE
     Indication: CLUSTER HEADACHE
     Route: 065
     Dates: start: 2010
  2. VERAPAMIL [Concomitant]
     Active Substance: VERAPAMIL HYDROCHLORIDE
     Indication: CLUSTER HEADACHE
  3. PREDNISONE TABLETS [Concomitant]
     Active Substance: PREDNISONE
     Indication: CLUSTER HEADACHE

REACTIONS (4)
  - Urticaria [Recovered/Resolved]
  - Device malfunction [Unknown]
  - Accidental exposure to product [Unknown]
  - Expired product administered [Unknown]

NARRATIVE: CASE EVENT DATE: 2010
